FAERS Safety Report 8510998-8 (Version None)
Quarter: 2012Q3

REPORT INFORMATION
  Report Type: 
  Country: None (occurrence: None)
  Receive Date: 20120710
  Receipt Date: 20120710
  Transmission Date: 20120928
  Serious: No
  Sender: FDA-Public Use
  Company Number: None

PATIENT

DRUGS (3)
  1. MORPHINE SULFATE [Suspect]
     Indication: SOMATOFORM DISORDER GASTROINTESTINAL
     Dates: start: 20120501, end: 20120504
  2. MORPHINE SULFATE [Suspect]
     Indication: ABDOMINAL DISCOMFORT
     Dates: start: 20120501, end: 20120504
  3. MORPHINE SULFATE [Suspect]
     Indication: NAUSEA
     Dates: start: 20120501, end: 20120504

REACTIONS (3)
  - NAUSEA [None]
  - PRODUCT QUALITY ISSUE [None]
  - PRODUCT TASTE ABNORMAL [None]
